FAERS Safety Report 5691966-0 (Version None)
Quarter: 2008Q2

REPORT INFORMATION
  Report Type: 
  Country: None (occurrence: None)
  Receive Date: 20080402
  Receipt Date: 20080319
  Transmission Date: 20081010
  Serious: Yes (Other)
  Sender: FDA-Public Use
  Company Number: PHFR2008GB01111

PATIENT
  Age: 63 Year
  Sex: Male

DRUGS (4)
  1. GLEEVEC [Suspect]
     Dosage: 400 MG/DAY
     Route: 065
     Dates: start: 20021001
  2. GLEEVEC [Suspect]
     Dosage: 600 MG/DAY
     Route: 065
     Dates: end: 20060901
  3. DASATINIB [Suspect]
     Dosage: 70 MG/DAY
     Route: 065
     Dates: start: 20070301
  4. DASATINIB [Suspect]
     Dosage: 140 MG/DAY
     Route: 065
     Dates: end: 20070701

REACTIONS (8)
  - ANGINA PECTORIS [None]
  - CHEST PAIN [None]
  - CORONARY ARTERY BYPASS [None]
  - CORONARY ARTERY STENOSIS [None]
  - NEUTROPENIA [None]
  - PALPITATIONS [None]
  - PLATELET COUNT ABNORMAL [None]
  - THERAPY RESPONDER [None]
